FAERS Safety Report 6518253-2 (Version None)
Quarter: 2009Q4

REPORT INFORMATION
  Report Type: 
  Country: None (occurrence: None)
  Receive Date: 20091224
  Receipt Date: 20091223
  Transmission Date: 20100525
  Serious: Yes (Hospitalization)
  Sender: FDA-Public Use
  Company Number: US-GILEAD-2009-0025691

PATIENT
  Sex: Female

DRUGS (13)
  1. LETAIRIS [Suspect]
     Indication: PULMONARY ARTERIAL HYPERTENSION
     Route: 048
     Dates: start: 20071016
  2. LASIX [Concomitant]
  3. LIPITOR [Concomitant]
  4. SPIRIVA [Concomitant]
  5. REVATIO [Concomitant]
  6. PREDNISONE TAB [Concomitant]
  7. ZOLOFT [Concomitant]
  8. LANTUS [Concomitant]
  9. METFORMIN HCL [Concomitant]
  10. NEXIUM [Concomitant]
  11. TUSSICAPS [Concomitant]
  12. CARBIN XT [Concomitant]
  13. ACIPHEX [Concomitant]

REACTIONS (6)
  - ACUTE RESPIRATORY FAILURE [None]
  - CARDIAC FAILURE CONGESTIVE [None]
  - DYSPNOEA [None]
  - INFLUENZA [None]
  - NON-CARDIAC CHEST PAIN [None]
  - PULMONARY HYPERTENSION [None]
